FAERS Safety Report 6160537-4 (Version None)
Quarter: 2009Q2

REPORT INFORMATION
  Report Type: 
  Country: None (occurrence: None)
  Receive Date: 20090416
  Receipt Date: 20090402
  Transmission Date: 20091009
  Serious: Yes (Hospitalization)
  Sender: FDA-Public Use
  Company Number: SPI200900119

PATIENT
  Age: 60 Year
  Sex: Female

DRUGS (2)
  1. AMITIZA [Suspect]
     Dosage: 24 MCG,
  2. GOLYTELY /00747901/ (MACROGOL, POTASSIUM CHLORIDE, SODIUM BICARBONATE, [Concomitant]

REACTIONS (1)
  - CARDIAC FAILURE CONGESTIVE [None]
